FAERS Safety Report 8761123 (Version 3)
Quarter: 2013Q1

REPORT INFORMATION
  Report Type: Spontaneous
  Country: JP (occurrence: JP)
  Receive Date: 20120830
  Receipt Date: 20130204
  Transmission Date: 20140127
  Serious: Yes (Life-Threatening)
  Sender: FDA-Public Use
  Company Number: JP-ASTRAZENECA-2012SE64719

PATIENT
  Age: 71 Year
  Sex: Female

DRUGS (4)
  1. MEROPEN [Suspect]
     Indication: SEPSIS
     Route: 042
  2. ZOSYN [Suspect]
     Route: 042
  3. CEFAZOLIN SODIUM [Suspect]
     Route: 065
  4. SEFIROM [Suspect]
     Route: 042

REACTIONS (1)
  - Pancytopenia [Unknown]
